FAERS Safety Report 6774079-6 (Version None)
Quarter: 2010Q2

REPORT INFORMATION
  Report Type: 
  Country: None (occurrence: None)
  Receive Date: 20100615
  Receipt Date: 20100615
  Transmission Date: 20101027
  Serious: No
  Sender: FDA-Public Use
  Company Number: None

PATIENT
  Sex: Male
  Weight: 42.3 kg

DRUGS (3)
  1. REMICADE [Suspect]
     Indication: CROHN'S DISEASE
     Dosage: 320 MG ONCE MONTHLY IV
     Route: 042
     Dates: start: 20100204
  2. REMICADE [Suspect]
     Indication: CROHN'S DISEASE
     Dosage: 320 MG ONCE MONTHLY IV
     Route: 042
     Dates: start: 20100312
  3. MERCAPTOPURINE [Concomitant]

REACTIONS (5)
  - BACK PAIN [None]
  - CHEST DISCOMFORT [None]
  - DYSPNOEA [None]
  - INFUSION RELATED REACTION [None]
  - NAUSEA [None]
